FAERS Safety Report 8539438-X (Version None)
Quarter: 2012Q3

REPORT INFORMATION
  Report Type: 
  Country: None (occurrence: None)
  Receive Date: 20120726
  Receipt Date: 20120717
  Transmission Date: 20120928
  Serious: Yes (Other)
  Sender: FDA-Public Use
  Company Number: US-JNJFOC-20120609823

PATIENT
  Sex: Female
  Weight: 113.4 kg

DRUGS (10)
  1. REMICADE [Suspect]
     Indication: CROHN'S DISEASE
     Route: 042
  2. GLIPIZIDE [Concomitant]
     Indication: DIABETES MELLITUS
     Route: 065
  3. MULTI-VITAMINS [Concomitant]
     Route: 065
  4. DEXILANT [Concomitant]
     Indication: HYPERCHLORHYDRIA
     Route: 048
  5. REMICADE [Suspect]
     Route: 042
  6. XYZAL [Concomitant]
     Indication: MULTIPLE ALLERGIES
     Route: 065
  7. FOLIC ACID [Concomitant]
     Indication: FOLATE DEFICIENCY
     Route: 065
  8. PAXIL [Concomitant]
     Indication: FATIGUE
     Route: 048
  9. WELLBUTRIN XL [Concomitant]
     Indication: FATIGUE
     Route: 048
  10. VITAMIN B-12 [Concomitant]
     Indication: VITAMIN B12 DEFICIENCY
     Route: 065

REACTIONS (5)
  - AMNESIA [None]
  - COGNITIVE DISORDER [None]
  - BLOOD GLUCOSE INCREASED [None]
  - FISTULA [None]
  - FATIGUE [None]
